FAERS Safety Report 6465471-8 (Version None)
Quarter: 2009Q4

REPORT INFORMATION
  Report Type: 
  Country: None (occurrence: None)
  Receive Date: 20091201
  Receipt Date: 20081118
  Transmission Date: 20100525
  Serious: No
  Sender: FDA-Public Use
  Company Number: US-AMGEN-KDL310648

PATIENT
  Sex: Female
  Weight: 52.4 kg

DRUGS (9)
  1. ENBREL [Suspect]
     Indication: PSORIATIC ARTHROPATHY
     Route: 058
     Dates: start: 20080403
  2. METHOTREXATE [Concomitant]
     Route: 048
     Dates: start: 20071213
  3. CETIRIZINE [Concomitant]
     Dates: start: 20080814
  4. FOLIC ACID [Concomitant]
     Dates: start: 20071213
  5. INDOCIN [Concomitant]
     Dates: start: 20070604
  6. PRILOSEC [Concomitant]
  7. UNSPECIFIED MEDICATION [Concomitant]
     Route: 061
  8. TRIAMCINOLONE [Concomitant]
  9. ZOFRAN [Concomitant]
     Dates: start: 20080313

REACTIONS (7)
  - INJECTION SITE ERYTHEMA [None]
  - INJECTION SITE PAIN [None]
  - INJECTION SITE PRURITUS [None]
  - INJECTION SITE REACTION [None]
  - INJECTION SITE RECALL REACTION [None]
  - INJECTION SITE SWELLING [None]
  - INJECTION SITE URTICARIA [None]
